FAERS Safety Report 25632905 (Version 1)
Quarter: 2025Q3

REPORT INFORMATION
  Report Type: Spontaneous
  Country: US (occurrence: US)
  Receive Date: 20250801
  Receipt Date: 20250801
  Transmission Date: 20251021
  Serious: No
  Sender: GRIFOLS
  Company Number: US-IGSA-BIG0035108

PATIENT
  Age: 70 Year
  Sex: Female

DRUGS (1)
  1. GAMUNEX-C [Suspect]
     Active Substance: HUMAN IMMUNOGLOBULIN G
     Indication: Hypogammaglobulinaemia
     Dosage: 40 GRAM, Q.WK.
     Route: 058

REACTIONS (6)
  - Abdominal distension [Unknown]
  - Muscle spasms [Unknown]
  - Pyrexia [Unknown]
  - Migraine [Unknown]
  - Influenza [Unknown]
  - Dizziness [Unknown]

NARRATIVE: CASE EVENT DATE: 20250430
